FAERS Safety Report 10601300 (Version 1)
Quarter: 2014Q4

REPORT INFORMATION
  Report Type: Spontaneous
  Country: US (occurrence: None)
  Receive Date: 20141121
  Receipt Date: 20141121
  Transmission Date: 20150529
  Serious: Yes (Hospitalization)
  Sender: FDA-Public Use
  Company Number: None

PATIENT
  Age: 38 Year
  Sex: Female
  Weight: 57.15 kg

DRUGS (1)
  1. TAMIFLU [Suspect]
     Active Substance: OSELTAMIVIR PHOSPHATE
     Indication: INFLUENZA B VIRUS TEST POSITIVE
     Dosage: 1PILL, TWICE DAILY, TAKEN BY MOUTH
     Route: 048
     Dates: start: 20141113, end: 20141114

REACTIONS (8)
  - Feeling abnormal [None]
  - Tension headache [None]
  - Hypoaesthesia [None]
  - Swelling face [None]
  - Chest discomfort [None]
  - Palpitations [None]
  - Hyperhidrosis [None]
  - Rash [None]

NARRATIVE: CASE EVENT DATE: 20141116
